FAERS Safety Report 7785695-7 (Version None)
Quarter: 2011Q3

REPORT INFORMATION
  Report Type: 
  Country: None (occurrence: None)
  Receive Date: 20110929
  Receipt Date: 20110517
  Transmission Date: 20111222
  Serious: No
  Sender: FDA-Public Use
  Company Number: US-GLAXOSMITHKLINE-A0929171A

PATIENT
  Sex: Female

DRUGS (1)
  1. FORTAZ [Suspect]
     Indication: PRODUCT USED FOR UNKNOWN INDICATION
     Route: 033

REACTIONS (5)
  - BURNING SENSATION [None]
  - SINUS CONGESTION [None]
  - HYPERSENSITIVITY [None]
  - INCORRECT ROUTE OF DRUG ADMINISTRATION [None]
  - PRURITUS [None]
